FAERS Safety Report 17631357 (Version 1)
Quarter: 2020Q2

REPORT INFORMATION
  Report Type: Spontaneous
  Country: BE (occurrence: BE)
  Receive Date: 20200406
  Receipt Date: 20200406
  Transmission Date: 20200713
  Serious: Yes (Life-Threatening)
  Sender: FDA-Public Use
  Company Number: BE-GLAXOSMITHKLINE-BE2020026463

PATIENT
  Age: 44 Year
  Sex: Male

DRUGS (2)
  1. VOLTAREN EMULGEL [Suspect]
     Active Substance: DICLOFENAC DIETHYLAMINE
     Indication: MYALGIA
  2. VOLTAREN EMULGEL [Suspect]
     Active Substance: DICLOFENAC DIETHYLAMINE
     Indication: MUSCLE CONTRACTURE
     Dosage: 1 DF, BID, 2X/D 1 DOSE
     Route: 061

REACTIONS (2)
  - Thermal burn [Recovered/Resolved]
  - Wrong technique in product usage process [Unknown]

NARRATIVE: CASE EVENT DATE: 20200305
